FAERS Safety Report 10381623 (Version 1)
Quarter: 2014Q1

REPORT INFORMATION
  Report Type: Spontaneous
  Country: US (occurrence: None)
  Receive Date: 20140306
  Receipt Date: 20140306
  Transmission Date: 20141002
  Serious: Yes (Hospitalization)
  Sender: FDA-Public Use
  Company Number: 163-21880-13040809

PATIENT
  Age: 57 Year
  Sex: Female
  Weight: 81.65 kg

DRUGS (8)
  1. REVLIMID [Suspect]
     Indication: PLASMA CELL MYELOMA
     Route: 048
     Dates: start: 200903
  2. CALCIUM (CALCIUM) [Concomitant]
  3. ZOMETA (ZOLEDRONIC ACID) [Concomitant]
  4. CARVEDILOL (CARVEDILOL) [Concomitant]
  5. HYDROCODONE ACETAMINOPHEN (REMEDEINE) [Concomitant]
  6. ASPIRIN (ACETYLSALICYLIC ACID) [Concomitant]
  7. CLARITIN (LORATADINE) [Concomitant]
  8. FOLIC ACID (FOLIC ACID) [Concomitant]

REACTIONS (3)
  - Respiratory syncytial virus infection [None]
  - Pneumonia [None]
  - Skin exfoliation [None]
